FAERS Safety Report 12636576 (Version 1)
Quarter: 2016Q3

REPORT INFORMATION
  Report Type: Spontaneous
  Country: FR (occurrence: FR)
  Receive Date: 20160809
  Receipt Date: 20160809
  Transmission Date: 20161109
  Serious: Yes (Other)
  Sender: FDA-Public Use
  Company Number: FR-AMGEN-FRASP2016102808

PATIENT
  Age: 58 Year
  Sex: Male

DRUGS (9)
  1. SIMVASTATIN. [Concomitant]
     Active Substance: SIMVASTATIN
  2. DIAMICRON [Concomitant]
     Active Substance: GLICLAZIDE
  3. COOLMETEC [Concomitant]
     Active Substance: HYDROCHLOROTHIAZIDE\OLMESARTAN MEDOXOMIL
  4. METFORMIN [Concomitant]
     Active Substance: METFORMIN HYDROCHLORIDE
  5. HYPERIUM [Concomitant]
     Active Substance: RILMENIDINE PHOSPHATE
  6. ALLOPURINOL. [Concomitant]
     Active Substance: ALLOPURINOL
  7. ENBREL [Suspect]
     Active Substance: ETANERCEPT
     Indication: RHEUMATOID ARTHRITIS
     Dosage: 1 DF, WEEKLY
     Route: 058
     Dates: start: 2013
  8. XELEVIA [Concomitant]
     Active Substance: SITAGLIPTIN PHOSPHATE
  9. LERCANIDIPINE [Concomitant]
     Active Substance: LERCANIDIPINE

REACTIONS (1)
  - Purpura [Not Recovered/Not Resolved]

NARRATIVE: CASE EVENT DATE: 201606
